FAERS Safety Report 10233045 (Version 1)
Quarter: 2014Q2

REPORT INFORMATION
  Report Type: Spontaneous
  Country: GB (occurrence: GB)
  Receive Date: 20140612
  Receipt Date: 20140612
  Transmission Date: 20141212
  Serious: Yes (Hospitalization)
  Sender: FDA-Public Use
  Company Number: GB-ASTRAZENECA-2014SE39259

PATIENT
  Age: 65 Year
  Sex: Male

DRUGS (18)
  1. MEROPENEM [Suspect]
     Indication: CHRONIC OBSTRUCTIVE PULMONARY DISEASE
     Route: 042
     Dates: start: 20140523, end: 20140526
  2. MEROPENEM [Suspect]
     Indication: PNEUMONIA
     Route: 042
     Dates: start: 20140523, end: 20140526
  3. THEOPHYLLINE [Suspect]
     Indication: CHRONIC OBSTRUCTIVE PULMONARY DISEASE
     Route: 065
     Dates: end: 20140527
  4. ASPIRIN [Concomitant]
  5. CARBOCISTEINE [Concomitant]
  6. DIAZEPAM [Concomitant]
  7. DILTIAZEM [Concomitant]
  8. IPRATROPIUM [Concomitant]
  9. ISOSORBIDE [Concomitant]
  10. LANSOPRAZOLE [Concomitant]
  11. NICORANDIL [Concomitant]
  12. OXYBUTYNIN [Concomitant]
  13. PRASUGREL [Concomitant]
  14. PREDNISOLONE [Concomitant]
  15. QUININE [Concomitant]
  16. RAMIPRIL [Concomitant]
  17. SALBUTAMOL [Concomitant]
  18. SIMVASTATIN [Concomitant]

REACTIONS (4)
  - Tonic clonic movements [Unknown]
  - Loss of consciousness [Recovered/Resolved]
  - Unresponsive to stimuli [Unknown]
  - Convulsion [Not Recovered/Not Resolved]
